FAERS Safety Report 9245615 (Version 1)
Quarter: 2013Q2

REPORT INFORMATION
  Report Type: Spontaneous
  Country: US (occurrence: US)
  Receive Date: 20130422
  Receipt Date: 20130422
  Transmission Date: 20140414
  Serious: No
  Sender: FDA-Public Use
  Company Number: US-BAYER-2013-050216

PATIENT
  Age: 87 Year
  Sex: Male
  Weight: 57 kg

DRUGS (2)
  1. ALEVE CAPLET [Suspect]
     Indication: ARTHRITIS
     Dosage: 1 DF, BID
     Route: 048
     Dates: start: 2010
  2. HYTRIN [Concomitant]

REACTIONS (1)
  - Incorrect drug administration duration [None]
